FAERS Safety Report 9242889 (Version 2)
Quarter: 2013Q2

REPORT INFORMATION
  Report Type: Spontaneous
  Country: ES (occurrence: ES)
  Receive Date: 20130419
  Receipt Date: 20130429
  Transmission Date: 20140414
  Serious: Yes (Hospitalization, Other)
  Sender: FDA-Public Use
  Company Number: ES-ABBOTT-13P-144-1077118-00

PATIENT
  Sex: Male

DRUGS (6)
  1. HUMIRA [Suspect]
     Indication: CROHN^S DISEASE
  2. HUMIRA [Suspect]
  3. HUMIRA [Suspect]
     Route: 058
  4. HUMIRA [Suspect]
     Route: 058
  5. HUMIRA [Suspect]
     Route: 058
  6. HUMIRA [Suspect]
     Route: 058
     Dates: start: 2011

REACTIONS (4)
  - Intestinal polyp [Unknown]
  - Abdominal pain [Unknown]
  - Drug ineffective [Unknown]
  - Abdominal pain [Unknown]
